FAERS Safety Report 4707133-0 (Version None)
Quarter: 2005Q3

REPORT INFORMATION
  Report Type: 
  Country: None (occurrence: None)
  Receive Date: 20050706
  Receipt Date: 20050113
  Transmission Date: 20060218
  Serious: Yes (Other)
  Sender: FDA-Public Use
  Company Number: JP-ROCHE-394365

PATIENT
  Age: 73 Year
  Sex: Female

DRUGS (7)
  1. PEG-INTERFERON ALFA 2A (RO 25-8310) [Suspect]
     Route: 058
     Dates: start: 20040219, end: 20040219
  2. PEG-INTERFERON ALFA 2A (RO 25-8310) [Suspect]
     Route: 058
     Dates: start: 20050226
  3. ASCOMP [Concomitant]
     Route: 048
     Dates: start: 20030320
  4. URALYT [Concomitant]
     Route: 048
     Dates: start: 20030320
  5. DEPAS [Concomitant]
     Dosage: TAKEN ONLY WHEN SLEEPLESS: 0.5 MG.
     Route: 048
     Dates: start: 20030320
  6. OSTEN [Concomitant]
     Route: 048
     Dates: start: 20030320
  7. FELBINAC [Concomitant]
     Dosage: DOSE FORM REPORTED AS TAPE.
     Route: 061
     Dates: start: 20030806

REACTIONS (8)
  - CEREBRAL ISCHAEMIA [None]
  - DECREASED APPETITE [None]
  - HEPATITIS CHRONIC ACTIVE [None]
  - IIIRD NERVE PARALYSIS [None]
  - MALAISE [None]
  - PLATELET COUNT DECREASED [None]
  - RED BLOOD CELL COUNT DECREASED [None]
  - WHITE BLOOD CELL COUNT DECREASED [None]
